FAERS Safety Report 24071069 (Version 1)
Quarter: 2024Q3

REPORT INFORMATION
  Report Type: Report from Study
  Country: CN (occurrence: CN)
  Receive Date: 20240710
  Receipt Date: 20240710
  Transmission Date: 20241017
  Serious: No
  Sender: ROCHE
  Company Number: CN-ROCHE-3247917

PATIENT
  Age: 47 Year
  Sex: Male
  Weight: 69.0 kg

DRUGS (1)
  1. ALECENSA [Suspect]
     Active Substance: ALECTINIB HYDROCHLORIDE
     Indication: Lung neoplasm malignant
     Dosage: 1 DF = 1 CAPSULE?CAPSULES 150 MG * 56 CAPSULES * 4 SMALL BOXES
     Route: 048
     Dates: start: 20220310

REACTIONS (5)
  - Rash [Not Recovered/Not Resolved]
  - Hypogeusia [Unknown]
  - Hepatic function abnormal [Not Recovered/Not Resolved]
  - Decreased appetite [Not Recovered/Not Resolved]
  - Alpha 1 foetoprotein increased [Unknown]
